FAERS Safety Report 24558080 (Version 1)
Quarter: 2024Q4

REPORT INFORMATION
  Report Type: Spontaneous
  Country: US (occurrence: US)
  Receive Date: 20241028
  Receipt Date: 20241028
  Transmission Date: 20250115
  Serious: No
  Sender: ALEXION PHARMACEUTICALS
  Company Number: US-AstraZeneca-CH-00730762A

PATIENT
  Age: 68 Year

DRUGS (1)
  1. IMFINZI [Suspect]
     Active Substance: DURVALUMAB

REACTIONS (4)
  - Diarrhoea [Unknown]
  - Dyspnoea [Unknown]
  - Fatigue [Unknown]
  - Swelling [Unknown]
